FAERS Safety Report 8008645-7 (Version None)
Quarter: 2011Q4

REPORT INFORMATION
  Report Type: 
  Country: None (occurrence: None)
  Receive Date: 20111221
  Receipt Date: 20111214
  Transmission Date: 20120403
  Serious: Yes (Hospitalization, Other)
  Sender: FDA-Public Use
  Company Number: ADR-2011-11779

PATIENT
  Sex: Male

DRUGS (3)
  1. LIORESAL [Suspect]
     Indication: HEAD INJURY
     Dosage: 1600 MCG/DAY,INTRATH.
     Route: 037
  2. LIORESAL [Suspect]
     Indication: BRAIN INJURY
     Dosage: 1600 MCG/DAY,INTRATH.
     Route: 037
  3. LIORESAL [Suspect]
     Indication: MUSCLE SPASTICITY
     Dosage: 1600 MCG/DAY,INTRATH.
     Route: 037

REACTIONS (2)
  - CONVULSION [None]
  - DYSTONIA [None]
